FAERS Safety Report 23606681 (Version 1)
Quarter: 2024Q1

REPORT INFORMATION
  Report Type: Spontaneous
  Country: KR (occurrence: KR)
  Receive Date: 20240307
  Receipt Date: 20240307
  Transmission Date: 20240409
  Serious: Yes (Other)
  Sender: FDA-Public Use
  Company Number: KR-009507513-2403KOR000977

PATIENT
  Age: 80 Year
  Sex: Male

DRUGS (3)
  1. INVANZ [Suspect]
     Active Substance: ERTAPENEM SODIUM
     Indication: Nephrolithiasis
     Dosage: 1 DOSAGE FORM, QD
     Dates: start: 20171010, end: 20171017
  2. AMPICILLIN SODIUM\SULBACTAM SODIUM [Suspect]
     Active Substance: AMPICILLIN SODIUM\SULBACTAM SODIUM
     Indication: Nephrolithiasis
     Dosage: 0.5 DOSAGE FORM, QID
     Dates: start: 20171010, end: 20171017
  3. ALLOPURINOL [Suspect]
     Active Substance: ALLOPURINOL
     Indication: Nephrolithiasis
     Dosage: 1 DOSAGE FORM, QD
     Dates: start: 20171010, end: 20171017

REACTIONS (2)
  - Drug reaction with eosinophilia and systemic symptoms [Recovered/Resolved]
  - Stevens-Johnson syndrome [Recovered/Resolved]

NARRATIVE: CASE EVENT DATE: 20171023
